FAERS Safety Report 7176431-6 (Version None)
Quarter: 2010Q4

REPORT INFORMATION
  Report Type: 
  Country: None (occurrence: None)
  Receive Date: 20101220
  Receipt Date: 20101213
  Transmission Date: 20110411
  Serious: Yes (Death)
  Sender: FDA-Public Use
  Company Number: US-CELGENEUS-163-21880-10121577

PATIENT
  Sex: Male

DRUGS (4)
  1. REVLIMID [Suspect]
     Indication: MULTIPLE MYELOMA
     Route: 048
     Dates: start: 20100515, end: 20100605
  2. MS CONTIN [Concomitant]
     Route: 065
  3. TAMSULOSIN [Concomitant]
     Route: 065
  4. MEGACE [Concomitant]
     Route: 065

REACTIONS (1)
  - DEATH [None]
